FAERS Safety Report 25431271 (Version 1)
Quarter: 2025Q2

REPORT INFORMATION
  Report Type: Spontaneous
  Country: US (occurrence: US)
  Receive Date: 20250613
  Receipt Date: 20250613
  Transmission Date: 20250717
  Serious: No
  Sender: GLAXOSMITHKLINE
  Company Number: US-GSK-US2025AMR070657

PATIENT

DRUGS (2)
  1. ZEJULA [Suspect]
     Active Substance: NIRAPARIB
     Indication: Agranulocytosis
  2. ZEJULA [Suspect]
     Active Substance: NIRAPARIB
     Indication: Iron deficiency anaemia

REACTIONS (1)
  - Off label use [Unknown]
